FAERS Safety Report 13086365 (Version 1)
Quarter: 2017Q1

REPORT INFORMATION
  Report Type: Spontaneous
  Country: AR (occurrence: AR)
  Receive Date: 20170104
  Receipt Date: 20170104
  Transmission Date: 20170428
  Serious: Yes (Other)
  Sender: FDA-Public Use
  Company Number: AR-PFIZER INC-2017001949

PATIENT
  Age: 53 Year
  Sex: Male

DRUGS (1)
  1. INLYTA [Suspect]
     Active Substance: AXITINIB
     Indication: RENAL CELL CARCINOMA
     Dosage: 10 MG, DAILY
     Dates: start: 20161012

REACTIONS (14)
  - Colitis [Recovered/Resolved]
  - Pruritus [Unknown]
  - Penile swelling [Unknown]
  - Haematochezia [Recovered/Resolved]
  - Haematuria [Recovered/Resolved]
  - Hyperhidrosis [Recovered/Resolved]
  - Musculoskeletal pain [Unknown]
  - Dysuria [Unknown]
  - Oral mucosal blistering [Unknown]
  - Abasia [Not Recovered/Not Resolved]
  - Limb injury [Not Recovered/Not Resolved]
  - Pain in extremity [Not Recovered/Not Resolved]
  - Limb discomfort [Not Recovered/Not Resolved]
  - Penis injury [Unknown]

NARRATIVE: CASE EVENT DATE: 2016
